FAERS Safety Report 13183462 (Version 4)
Quarter: 2019Q1

REPORT INFORMATION
  Report Type: Spontaneous
  Country: US (occurrence: US)
  Receive Date: 20170203
  Receipt Date: 20190222
  Transmission Date: 20190417
  Serious: No
  Sender: FDA-Public Use
  Company Number: US-ASTRAZENECA-2005BM04918

PATIENT
  Age: 20890 Day
  Sex: Female
  Weight: 61.2 kg

DRUGS (7)
  1. BYETTA [Suspect]
     Active Substance: EXENATIDE
     Indication: TYPE 2 DIABETES MELLITUS
     Route: 058
     Dates: start: 20051117
  2. IMODIUM [Concomitant]
     Active Substance: LOPERAMIDE HYDROCHLORIDE
     Indication: DIARRHOEA
     Dosage: UNK
  3. BYETTA [Suspect]
     Active Substance: EXENATIDE
     Indication: TYPE 2 DIABETES MELLITUS
     Route: 058
     Dates: start: 2005, end: 20160201
  4. BYETTA [Suspect]
     Active Substance: EXENATIDE
     Indication: TYPE 2 DIABETES MELLITUS
     Route: 058
  5. METAMUCIL [Concomitant]
     Active Substance: PLANTAGO SEED
     Indication: DIARRHOEA
     Dosage: UNK
  6. LOMOTIL [Concomitant]
     Active Substance: ATROPINE SULFATE\DIPHENOXYLATE HYDROCHLORIDE
     Indication: DIARRHOEA
     Dosage: UNK
  7. BYETTA [Suspect]
     Active Substance: EXENATIDE
     Indication: TYPE 2 DIABETES MELLITUS
     Route: 058
     Dates: start: 20160215

REACTIONS (9)
  - Weight decreased [Unknown]
  - Urticaria [Recovered/Resolved]
  - Therapeutic response unexpected [Not Recovered/Not Resolved]
  - Blood glucose increased [Unknown]
  - Dyspepsia [Recovered/Resolved]
  - Off label use [Unknown]
  - Increased appetite [Not Recovered/Not Resolved]
  - Intentional product misuse [Unknown]
  - Product dose omission [Unknown]

NARRATIVE: CASE EVENT DATE: 20051117
